FAERS Safety Report 4319880-3 (Version None)
Quarter: 2004Q1

REPORT INFORMATION
  Report Type: 
  Country: None (occurrence: None)
  Receive Date: 20040316
  Receipt Date: 20040302
  Transmission Date: 20041129
  Serious: Yes (Other)
  Sender: FDA-Public Use
  Company Number: 2004202213US

PATIENT
  Age: 70 Year
  Sex: Female
  Weight: 72 kg

DRUGS (12)
  1. HEPARIN SODIUM INJECTION [Suspect]
     Indication: PULMONARY EMBOLISM
     Dosage: 6000 U, IV;  1120 U/H, IV
     Route: 042
  2. SOLUTIONS FOR PARENTERAL NUTRITION [Concomitant]
  3. POTASSIUM CHLORIDE [Concomitant]
  4. SODIUM CHLORIDE INJ [Concomitant]
  5. ALBUTEROL [Concomitant]
  6. KETOROLAC [Concomitant]
  7. ONDANSETRON HCL [Concomitant]
  8. MORPHINE [Concomitant]
  9. MEPERIDINE HCL [Concomitant]
  10. CEFAZOLIN [Concomitant]
  11. HALOPERIDOL [Concomitant]
  12. PANTOPRAZOLE [Concomitant]

REACTIONS (4)
  - BLOOD GLUCOSE INCREASED [None]
  - HYPERKALAEMIA [None]
  - HYPONATRAEMIA [None]
  - URINE SODIUM INCREASED [None]
